FAERS Safety Report 4944552-1 (Version None)
Quarter: 2006Q1

REPORT INFORMATION
  Report Type: 
  Country: None (occurrence: None)
  Receive Date: 20060315
  Receipt Date: 20050311
  Transmission Date: 20060701
  Serious: No
  Sender: FDA-Public Use
  Company Number: US-GLAXOSMITHKLINE-A0549393A

PATIENT
  Age: 32 Year
  Sex: Female

DRUGS (8)
  1. COMPAZINE [Suspect]
     Indication: NAUSEA
     Route: 042
     Dates: start: 19890101, end: 19890101
  2. ZOFRAN [Suspect]
     Dosage: 4MG SINGLE DOSE
     Route: 042
     Dates: start: 20050101, end: 20050101
  3. VERSED [Concomitant]
  4. NEOSTIGMINE [Concomitant]
  5. LIDOCAINE [Concomitant]
  6. FENTANYL CITRATE [Concomitant]
  7. PROPOFOL [Concomitant]
  8. VECURONIUM BROMIDE [Concomitant]

REACTIONS (5)
  - DYSPNOEA [None]
  - HYPERSENSITIVITY [None]
  - INTUBATION [None]
  - SWELLING FACE [None]
  - SWOLLEN TONGUE [None]
